FAERS Safety Report 15053262 (Version 2)
Quarter: 2018Q3

REPORT INFORMATION
  Report Type: Spontaneous
  Country: DE (occurrence: DE)
  Receive Date: 20180622
  Receipt Date: 20180830
  Transmission Date: 20181010
  Serious: Yes (Life-Threatening, Hospitalization, Other)
  Sender: FDA-Public Use
  Company Number: DE-JAZZ-2018-DE-009578

PATIENT
  Age: 2 Year
  Sex: Male
  Weight: 15.2 kg

DRUGS (20)
  1. METHOTREXATE. [Concomitant]
     Active Substance: METHOTREXATE
     Indication: ACUTE LYMPHOCYTIC LEUKAEMIA
     Dosage: 2700 MG, OVER 24 HOURS
     Route: 042
     Dates: start: 20160906, end: 20160907
  2. CYCLOPHOSPHAMIDE. [Concomitant]
     Active Substance: CYCLOPHOSPHAMIDE
     Indication: PHILADELPHIA CHROMOSOME POSITIVE
     Dosage: 5 DOSES AT 100 MG
     Route: 042
     Dates: start: 20160907, end: 20160909
  3. VINCRISTINE [Concomitant]
     Active Substance: VINCRISTINE
     Indication: PHILADELPHIA CHROMOSOME POSITIVE
  4. CYCLOPHOSPHAMIDE. [Concomitant]
     Active Substance: CYCLOPHOSPHAMIDE
     Indication: ACUTE LYMPHOCYTIC LEUKAEMIA
  5. METHOTREXATE. [Concomitant]
     Active Substance: METHOTREXATE
     Indication: PHILADELPHIA CHROMOSOME POSITIVE
  6. DOXORUBICIN [Concomitant]
     Active Substance: DOXORUBICIN
     Indication: PHILADELPHIA CHROMOSOME POSITIVE
  7. DAUNORUBICIN [Concomitant]
     Active Substance: DAUNORUBICIN
     Indication: PHILADELPHIA CHROMOSOME POSITIVE
     Dosage: 17 MG, OVER 24 HOURS
     Route: 042
     Dates: start: 20161003, end: 20161004
  8. DAUNORUBICIN [Concomitant]
     Active Substance: DAUNORUBICIN
     Indication: ACUTE LYMPHOCYTIC LEUKAEMIA
  9. VINCRISTINE [Concomitant]
     Active Substance: VINCRISTINE
     Indication: ACUTE LYMPHOCYTIC LEUKAEMIA
     Dosage: 0.9 MG, QD  (DAY 8, 15, 22, 29)
     Route: 042
     Dates: start: 20170327, end: 20170417
  10. IFOSFAMIDE. [Concomitant]
     Active Substance: IFOSFAMIDE
     Indication: PHILADELPHIA CHROMOSOME POSITIVE
  11. ASPARAGINASE [Suspect]
     Active Substance: ASPARAGINASE
     Indication: LEUKAEMIA
     Dosage: 14000 IU, UNKNOWN
     Route: 065
  12. GLIVEC [Suspect]
     Active Substance: IMATINIB MESYLATE
     Indication: ACUTE LYMPHOCYTIC LEUKAEMIA
     Dosage: 150 OT,
     Route: 048
     Dates: start: 20160616
  13. GLIVEC [Suspect]
     Active Substance: IMATINIB MESYLATE
     Indication: PHILADELPHIA CHROMOSOME POSITIVE
     Dosage: 200 MG, QD
     Route: 048
     Dates: start: 20160621
  14. DOXORUBICIN [Concomitant]
     Active Substance: DOXORUBICIN
     Indication: ACUTE LYMPHOCYTIC LEUKAEMIA
     Dosage: 15 MG, QD(DAY 8, 15, 22, 29)
     Route: 042
  15. CYTARABINE. [Concomitant]
     Active Substance: CYTARABINE
     Indication: PHILADELPHIA CHROMOSOME POSITIVE
     Dosage: 47 MG, QD
     Route: 042
     Dates: start: 20170515, end: 20170518
  16. IFOSFAMIDE. [Concomitant]
     Active Substance: IFOSFAMIDE
     Indication: ACUTE LYMPHOCYTIC LEUKAEMIA
     Dosage: 2800 MG, OVER 24 HOURS
     Route: 042
     Dates: start: 20160929, end: 20160930
  17. AMBISOME [Suspect]
     Active Substance: AMPHOTERICIN B
     Indication: PRODUCT USED FOR UNKNOWN INDICATION
     Dosage: 34 MG, UNK
     Route: 065
     Dates: start: 20161004
  18. CYTARABINE. [Concomitant]
     Active Substance: CYTARABINE
     Indication: ACUTE LYMPHOCYTIC LEUKAEMIA
     Dosage: 47 MG, QD
     Route: 042
     Dates: start: 20170522, end: 20170525
  19. CYTARABINE. [Concomitant]
     Active Substance: CYTARABINE
     Dosage: 2 DOSES AT 1110 MG
     Route: 042
     Dates: start: 20160910, end: 20160910
  20. VINDESINE [Concomitant]
     Active Substance: VINDESINE
     Indication: LEUKAEMIA
     Dosage: 1.7 MG
     Route: 065
     Dates: start: 20161004

REACTIONS (19)
  - Infectious colitis [Unknown]
  - Neutropenia [Unknown]
  - Gastrointestinal viral infection [Recovered/Resolved]
  - Upper respiratory tract infection [Unknown]
  - Device related infection [Recovered/Resolved]
  - Drug hypersensitivity [Recovered/Resolved]
  - Nausea [Unknown]
  - Rotavirus infection [Unknown]
  - Conjunctivitis [Unknown]
  - Abdominal pain [Unknown]
  - Catheter site infection [Recovered/Resolved]
  - Rhinitis [Unknown]
  - Febrile neutropenia [Recovered/Resolved]
  - Staphylococcal sepsis [Unknown]
  - Hypokalaemia [Unknown]
  - Anal inflammation [Unknown]
  - Stomatitis [Unknown]
  - Clostridium difficile infection [Recovered/Resolved]
  - Pyrexia [Unknown]

NARRATIVE: CASE EVENT DATE: 20160912
